FAERS Safety Report 8330296-5 (Version None)
Quarter: 2012Q2

REPORT INFORMATION
  Report Type: 
  Country: None (occurrence: None)
  Receive Date: 20120502
  Receipt Date: 20120420
  Transmission Date: 20120825
  Serious: Yes (Life-Threatening, Hospitalization, Other)
  Sender: FDA-Public Use
  Company Number: US-BRISTOL-MYERS SQUIBB COMPANY-16541245

PATIENT
  Age: 70 Year
  Sex: Female
  Weight: 68 kg

DRUGS (1)
  1. KENALOG-40 [Suspect]
     Indication: INTERVERTEBRAL DISC DEGENERATION
     Dosage: 11AUG2008, 25AUG2008, 09MAR2009, AND 01APR2009
     Route: 008
     Dates: start: 20080724

REACTIONS (6)
  - VENTRICULAR FIBRILLATION [None]
  - CORONARY ARTERY OCCLUSION [None]
  - RASH [None]
  - INCORRECT ROUTE OF DRUG ADMINISTRATION [None]
  - THYROID DISORDER [None]
  - RETINAL VEIN OCCLUSION [None]
